FAERS Safety Report 8379534-3 (Version None)
Quarter: 2012Q2

REPORT INFORMATION
  Report Type: 
  Country: None (occurrence: None)
  Receive Date: 20120523
  Receipt Date: 20120510
  Transmission Date: 20120825
  Serious: No
  Sender: FDA-Public Use
  Company Number: US-ASTRAZENECA-2011SE69271

PATIENT
  Age: 45 Year
  Sex: Male

DRUGS (2)
  1. TOPROL-XL [Suspect]
     Route: 048
  2. TOPROL-XL [Suspect]
     Route: 048

REACTIONS (4)
  - ADVERSE EVENT [None]
  - BLOOD PRESSURE INCREASED [None]
  - DYSPEPSIA [None]
  - DYSGEUSIA [None]
